FAERS Safety Report 5485508-2 (Version None)
Quarter: 2007Q4

REPORT INFORMATION
  Report Type: 
  Country: None (occurrence: None)
  Receive Date: 20071010
  Receipt Date: 20071010
  Transmission Date: 20080405
  Serious: Yes (Death)
  Sender: FDA-Public Use
  Company Number: None

PATIENT
  Age: 2 Month
  Sex: Male
  Weight: 4.536 kg

DRUGS (1)
  1. ANDEHIST-DM NR ORAL DROPS CYPRESS [Suspect]
     Indication: NASOPHARYNGITIS
     Dosage: 1/ML 4 TIME A DAY PO
     Route: 048
     Dates: start: 20031105, end: 20031106

REACTIONS (1)
  - SUDDEN INFANT DEATH SYNDROME [None]
